FAERS Safety Report 26131673 (Version 2)
Quarter: 2025Q4

REPORT INFORMATION
  Report Type: Spontaneous
  Country: US (occurrence: US)
  Receive Date: 20251208
  Receipt Date: 20251211
  Transmission Date: 20260118
  Serious: No
  Sender: ELI LILLY AND COMPANY
  Company Number: US-ELI_LILLY_AND_COMPANY-US202512009072

PATIENT
  Age: 75 Year

DRUGS (9)
  1. TRULICITY [Suspect]
     Active Substance: DULAGLUTIDE
     Indication: Diabetes mellitus
     Dosage: UNK UNK, UNKNOWN
     Route: 065
  2. TRULICITY [Suspect]
     Active Substance: DULAGLUTIDE
     Indication: Diabetes mellitus
     Dosage: UNK UNK, UNKNOWN
     Route: 065
  3. TRULICITY [Suspect]
     Active Substance: DULAGLUTIDE
     Indication: Coronary artery disease
  4. TRULICITY [Suspect]
     Active Substance: DULAGLUTIDE
     Indication: Coronary artery disease
  5. TRULICITY [Suspect]
     Active Substance: DULAGLUTIDE
     Indication: Hypolipidaemia
  6. TRULICITY [Suspect]
     Active Substance: DULAGLUTIDE
     Indication: Hypolipidaemia
  7. TRULICITY [Suspect]
     Active Substance: DULAGLUTIDE
     Indication: Hypertension
  8. TRULICITY [Suspect]
     Active Substance: DULAGLUTIDE
     Indication: Hypertension
  9. LIPITOR [Concomitant]
     Active Substance: ATORVASTATIN CALCIUM
     Indication: Hypertension
     Dosage: UNK, UNKNOWN
     Route: 065

REACTIONS (2)
  - Illness [Unknown]
  - Constipation [Unknown]
